FAERS Safety Report 16425710 (Version 6)
Quarter: 2020Q2

REPORT INFORMATION
  Report Type: Spontaneous
  Country: US (occurrence: US)
  Receive Date: 20190613
  Receipt Date: 20200616
  Transmission Date: 20200713
  Serious: No
  Sender: FDA-Public Use
  Company Number: US-PFIZER INC-2019249180

PATIENT
  Age: 70 Year
  Sex: Female
  Weight: 95 kg

DRUGS (4)
  1. IBRANCE [Suspect]
     Active Substance: PALBOCICLIB
     Indication: BREAST CANCER METASTATIC
     Dosage: 125 MG, CYCLIC (125MG ONCE A DAY BY MOUTH FOR 3 WEEKS THEN 1 WEEK OFF)
     Route: 048
     Dates: start: 20190509
  2. IBRANCE [Suspect]
     Active Substance: PALBOCICLIB
     Dosage: 75 MG, DAILY (EVERY DAY FOR 3 WEEKS)
     Route: 048
  3. FASLODEX [Concomitant]
     Active Substance: FULVESTRANT
     Indication: BREAST CANCER METASTATIC
     Dosage: UNK (EVERY 4 WEEKS)
     Route: 030
  4. XGEVA [Concomitant]
     Active Substance: DENOSUMAB
     Indication: BREAST CANCER METASTATIC
     Dosage: UNK (EVERY 4 WEEKS)
     Route: 058

REACTIONS (3)
  - White blood cell count decreased [Recovered/Resolved]
  - White blood cell count increased [Unknown]
  - Product dispensing error [Unknown]

NARRATIVE: CASE EVENT DATE: 2019
